FAERS Safety Report 4821951-X (Version None)
Quarter: 2005Q4

REPORT INFORMATION
  Report Type: 
  Country: None (occurrence: None)
  Receive Date: 20051103
  Receipt Date: 20051021
  Transmission Date: 20060501
  Serious: Yes (Hospitalization)
  Sender: FDA-Public Use
  Company Number: 2005146602

PATIENT
  Age: 54 Year
  Sex: Male

DRUGS (4)
  1. ALPRAZOLAM [Suspect]
     Indication: ILL-DEFINED DISORDER
     Dosage: 4 MG, ORAL
     Route: 048
     Dates: end: 20050906
  2. NOZINAN (LEVOMEPROMAZINE) [Suspect]
     Indication: ILL-DEFINED DISORDER
     Dosage: 200 MG (100 MG, 2 IN 1 D), ORAL
     Route: 048
     Dates: end: 20040906
  3. STILNOX (ZOLPIDEM) [Suspect]
     Indication: ILL-DEFINED DISORDER
     Dosage: 20 MG (2 IN 1 D), ORAL
     Route: 048
     Dates: end: 20040906
  4. EFFEXOR [Suspect]
     Indication: ILL-DEFINED DISORDER
     Dosage: 150 MG (3 IN 1 D), ORAL
     Route: 048
     Dates: end: 20050906

REACTIONS (12)
  - ACIDOSIS [None]
  - BLOOD BICARBONATE INCREASED [None]
  - BLOOD PH DECREASED [None]
  - CENTRAL-ALVEOLAR HYPOVENTILATION [None]
  - DYSPNOEA [None]
  - HYPERCAPNIA [None]
  - HYPOTONIA [None]
  - ORTHOPNOEA [None]
  - OXYGEN SATURATION DECREASED [None]
  - PCO2 INCREASED [None]
  - PO2 DECREASED [None]
  - SOMNOLENCE [None]
